FAERS Safety Report 5027162-X (Version None)
Quarter: 2006Q2

REPORT INFORMATION
  Report Type: 
  Country: None (occurrence: None)
  Receive Date: 20060501
  Receipt Date: 20060131
  Transmission Date: 20061013
  Serious: No
  Sender: FDA-Public Use
  Company Number: 200610632BWH

PATIENT
  Age: 72 Year
  Sex: Male

DRUGS (6)
  1. NEXAVAR [Suspect]
     Indication: RENAL CELL CARCINOMA STAGE UNSPECIFIED
     Dosage: 400 MG, BID, ORAL
     Route: 048
     Dates: start: 20060124
  2. ANTI HYPERTENSIVE MEDICATION (NOS) [Concomitant]
  3. AVAPRO [Concomitant]
  4. ATENOLOL [Concomitant]
  5. SODIUM HYDROCHLORIDE [Concomitant]
  6. PROSCAR [Concomitant]

REACTIONS (4)
  - DIARRHOEA [None]
  - FATIGUE [None]
  - PAIN IN EXTREMITY [None]
  - SKIN DISCOLOURATION [None]
